FAERS Safety Report 7423388-6 (Version None)
Quarter: 2011Q2

REPORT INFORMATION
  Report Type: 
  Country: None (occurrence: None)
  Receive Date: 20110419
  Receipt Date: 20110414
  Transmission Date: 20111010
  Serious: Yes (Other)
  Sender: FDA-Public Use
  Company Number: FR-GENZYME-FLUD-1001080

PATIENT
  Sex: Female

DRUGS (7)
  1. FLUDARA [Suspect]
     Dosage: UNK
     Route: 065
     Dates: end: 20080619
  2. FLUDARA [Suspect]
     Indication: B-CELL LYMPHOMA
     Dosage: UNK
     Route: 065
     Dates: start: 20040101
  3. MABTHERA [Suspect]
     Dosage: 375 MG/M2, 5 INJECTIONS
     Route: 065
     Dates: start: 20080901, end: 20090801
  4. FLUDARA [Suspect]
     Dosage: UNK
     Route: 065
  5. FLUDARA [Suspect]
     Dosage: UNK
     Route: 065
  6. MABTHERA [Suspect]
     Indication: B-CELL LYMPHOMA
     Dosage: UNK
     Route: 042
     Dates: start: 20040101, end: 20090810
  7. NOVANTRONE [Suspect]
     Indication: B-CELL LYMPHOMA
     Dosage: UNK
     Route: 042
     Dates: start: 20040101, end: 20080619

REACTIONS (6)
  - SKIN INFECTION [None]
  - SQUAMOUS CELL CARCINOMA [None]
  - SKIN NECROSIS [None]
  - BLOOD PRESSURE INCREASED [None]
  - HYPOGAMMAGLOBULINAEMIA [None]
  - CHILLS [None]
